FAERS Safety Report 7488545-1 (Version None)
Quarter: 2011Q2

REPORT INFORMATION
  Report Type: 
  Country: None (occurrence: None)
  Receive Date: 20110518
  Receipt Date: 20110510
  Transmission Date: 20111010
  Serious: Yes (Hospitalization)
  Sender: FDA-Public Use
  Company Number: US-B.I. PHARMACEUTICALS,INC./RIDGEFIELD-2011-BP-03464BP

PATIENT
  Sex: Male
  Weight: 122.92 kg

DRUGS (17)
  1. PLAVIX [Concomitant]
     Dosage: 75 MG
     Dates: end: 20110201
  2. ALLOPURINOL [Concomitant]
     Indication: GOUT
     Dosage: 300 MG
     Route: 048
  3. ALLOPURINOL [Concomitant]
     Indication: NEPHROLITHIASIS
  4. EFFIENT [Concomitant]
     Indication: ANTICOAGULANT THERAPY
     Dosage: 10 MG
     Route: 048
  5. PROPAFENONE HCL [Concomitant]
     Indication: CARDIAC DISORDER
     Dosage: 450 MG
     Route: 048
  6. COLCHICINE [Concomitant]
     Indication: GOUT
     Dosage: 0.6 MG
     Route: 048
  7. PRADAXA [Suspect]
     Indication: ATRIAL FIBRILLATION
     Dosage: 300 MG
     Route: 048
     Dates: start: 20110107
  8. POTASSIUM CITRATE [Concomitant]
     Indication: NEPHROLITHIASIS
     Dosage: 6480 MG
     Route: 048
  9. VITAMIN C [Concomitant]
  10. OMEPRAZOLE [Concomitant]
     Indication: DYSPEPSIA
     Dosage: 20 MG
     Route: 048
  11. SIMVASTATIN [Concomitant]
     Indication: CARDIAC DISORDER
     Dosage: 40 MG
     Route: 048
  12. MELOXICAM [Concomitant]
     Indication: ARTHRITIS
     Dosage: 15 MG
     Route: 048
  13. PRISTIQ [Concomitant]
     Indication: DEPRESSION
     Dosage: 50 MG
     Route: 048
  14. HYDROCHLOROTHIAZIDE [Concomitant]
     Indication: FLUID RETENTION
     Dosage: 12.5 MG
     Route: 048
  15. DILTIAZEM [Concomitant]
     Dosage: 240 MG
  16. LOSARTAN [Concomitant]
     Indication: CARDIAC DISORDER
     Dosage: 100 MG
     Route: 048
  17. FISH OIL [Concomitant]

REACTIONS (2)
  - DIVERTICULUM [None]
  - RECTAL HAEMORRHAGE [None]
